FAERS Safety Report 11321241 (Version 3)
Quarter: 2015Q4

REPORT INFORMATION
  Report Type: Report from Study
  Country: FR (occurrence: FR)
  Receive Date: 20150729
  Receipt Date: 20151029
  Transmission Date: 20160304
  Serious: Yes (Hospitalization, Other)
  Sender: FDA-Public Use
  Company Number: FR-GILEAD-2015-0164824

PATIENT
  Age: 69 Year
  Sex: Male
  Weight: 65 kg

DRUGS (10)
  1. COTRIMOXAZOLE [Concomitant]
     Active Substance: SULFAMETHOXAZOLE\TRIMETHOPRIM
  2. BISOPROLOL [Concomitant]
     Active Substance: BISOPROLOL
  3. BENDAMUSTINE [Suspect]
     Active Substance: BENDAMUSTINE
     Indication: NON-HODGKIN^S LYMPHOMA UNSPECIFIED HISTOLOGY INDOLENT
     Dosage: 90 MG/M2, CYCLICAL
     Route: 042
     Dates: start: 20150112, end: 20150605
  4. VALSARTAN. [Concomitant]
     Active Substance: VALSARTAN
  5. IDELALISIB [Suspect]
     Active Substance: IDELALISIB
     Indication: NON-HODGKIN^S LYMPHOMA UNSPECIFIED HISTOLOGY INDOLENT
     Dosage: 100 MG, BID
     Route: 048
     Dates: start: 20150409, end: 20150604
  6. RITUXIMAB [Suspect]
     Active Substance: RITUXIMAB
     Indication: NON-HODGKIN^S LYMPHOMA UNSPECIFIED HISTOLOGY INDOLENT
     Dosage: 375 MG/M2, CYCLICAL
     Route: 042
     Dates: start: 20150112, end: 20150604
  7. FOLINATE CALCIUM [Concomitant]
     Active Substance: LEUCOVORIN CALCIUM
  8. PARACETAMOL [Concomitant]
     Active Substance: ACETAMINOPHEN
  9. RACECADOTRIL [Concomitant]
     Active Substance: RACECADOTRIL
  10. ZELITREX [Concomitant]
     Active Substance: VALACYCLOVIR HYDROCHLORIDE

REACTIONS (11)
  - Inflammation [None]
  - Diarrhoea [None]
  - HLA marker study positive [None]
  - Breath sounds abnormal [None]
  - Oedema peripheral [None]
  - Parvovirus B19 test positive [None]
  - Polyarthritis [Recovered/Resolved]
  - Viral infection [None]
  - Synovial cyst [None]
  - Synovial fluid white blood cells positive [None]
  - Action tremor [None]

NARRATIVE: CASE EVENT DATE: 20150619
